FAERS Safety Report 7228057-3 (Version None)
Quarter: 2011Q1

REPORT INFORMATION
  Report Type: 
  Country: None (occurrence: None)
  Receive Date: 20110114
  Receipt Date: 20110104
  Transmission Date: 20110831
  Serious: Yes (Hospitalization)
  Sender: FDA-Public Use
  Company Number: JP-EISAI INC.-E3810-04364-SPO-JP

PATIENT
  Age: 72 Year
  Sex: Male

DRUGS (9)
  1. MAALOX [Concomitant]
  2. PARIET (RABEPRAZOLE) [Suspect]
     Indication: GASTRIC CANCER
     Route: 048
  3. THROMBIN LOCAL SOLUTION [Concomitant]
     Route: 048
  4. H-2 RECEPTOR ANTAGONISTS [Concomitant]
     Route: 041
  5. POLAPREZINC [Concomitant]
  6. PARIET (RABEPRAZOLE) [Suspect]
     Route: 048
  7. PARIET (RABEPRAZOLE) [Suspect]
     Route: 048
  8. TEPRENONE [Concomitant]
  9. TROXIPIDE [Concomitant]

REACTIONS (1)
  - GASTRIC PERFORATION [None]
